FAERS Safety Report 14508563 (Version 1)
Quarter: 2018Q1

REPORT INFORMATION
  Report Type: Spontaneous
  Country: DE (occurrence: DE)
  Receive Date: 20180209
  Receipt Date: 20180209
  Transmission Date: 20180509
  Serious: Yes (Life-Threatening, Hospitalization)
  Sender: FDA-Public Use
  Company Number: DE-009507513-1801DEU014138

PATIENT
  Age: 89 Year
  Sex: Female

DRUGS (7)
  1. DALTEPARIN SODIUM [Interacting]
     Active Substance: DALTEPARIN SODIUM
     Dosage: 2 TIMES 5000 I.E
  2. CARVEDILOL. [Interacting]
     Active Substance: CARVEDILOL
     Indication: HYPERTENSION
     Dosage: 25 MG, QD
  3. FERROUS GLYCINE SULFATE [Interacting]
     Active Substance: FERROUS GLYCINE SULFATE
     Dosage: 60 MG
  4. VERAPAMIL [Interacting]
     Active Substance: VERAPAMIL HYDROCHLORIDE
     Indication: ATRIAL FIBRILLATION
     Dosage: 3 X80 MG PER DAY
  5. TORSEMIDE. [Interacting]
     Active Substance: TORSEMIDE
     Dosage: 2 TIMES 10 MG
  6. SIMVASTATIN. [Suspect]
     Active Substance: SIMVASTATIN
     Dosage: 40 MG
     Route: 048
  7. CEFUROXIME. [Interacting]
     Active Substance: CEFUROXIME
     Dosage: 3 TIMES 1,5 G

REACTIONS (5)
  - Erysipelas [Unknown]
  - Drug interaction [Unknown]
  - Atrial fibrillation [Unknown]
  - Cardiogenic shock [Recovering/Resolving]
  - Stasis dermatitis [Unknown]
